FAERS Safety Report 25700419 (Version 2)
Quarter: 2025Q4

REPORT INFORMATION
  Report Type: Report from Study
  Country: PH (occurrence: PH)
  Receive Date: 20250819
  Receipt Date: 20251013
  Transmission Date: 20260117
  Serious: Yes (Death)
  Sender: OTSUKA
  Company Number: PH-MMM-Otsuka-RW6AVSMZ

PATIENT
  Sex: Female

DRUGS (1)
  1. TOLVAPTAN [Suspect]
     Active Substance: TOLVAPTAN
     Indication: Hypertension
     Dosage: 0.25 DF, QD (1/4 TABLET ONCE A DAY EVERY 2 PM)
     Dates: start: 202507, end: 20250722

REACTIONS (5)
  - Haematemesis [Fatal]
  - Hypertension [Fatal]
  - Underdose [Unknown]
  - Wrong technique in product usage process [Unknown]
  - Product use in unapproved indication [Unknown]

NARRATIVE: CASE EVENT DATE: 20250701
